FAERS Safety Report 5093144-5 (Version None)
Quarter: 2006Q3

REPORT INFORMATION
  Report Type: 
  Country: None (occurrence: None)
  Receive Date: 20060830
  Receipt Date: 20060324
  Transmission Date: 20061208
  Serious: Yes (Disabling)
  Sender: FDA-Public Use
  Company Number: US-BRISTOL-MYERS SQUIBB COMPANY-13326202

PATIENT
  Age: 44 Year
  Sex: Male

DRUGS (6)
  1. SUSTIVA [Suspect]
     Indication: HIV INFECTION
     Dosage: THERAPY: LESS THAN 2 WEEKS
     Route: 048
     Dates: start: 20060301
  2. COMBIVIR [Concomitant]
  3. VICODIN [Concomitant]
  4. NEURONTIN [Concomitant]
  5. REMERON [Concomitant]
  6. VALIUM [Concomitant]

REACTIONS (5)
  - CRYING [None]
  - DISORIENTATION [None]
  - MENTAL STATUS CHANGES [None]
  - MOOD ALTERED [None]
  - NERVOUS SYSTEM DISORDER [None]
